FAERS Safety Report 5138020-4 (Version None)
Quarter: 2006Q4

REPORT INFORMATION
  Report Type: 
  Country: None (occurrence: None)
  Receive Date: 20061030
  Receipt Date: 20060403
  Transmission Date: 20070319
  Serious: No
  Sender: FDA-Public Use
  Company Number: US-GLAXOSMITHKLINE-A0600085A

PATIENT
  Age: 65 Year
  Sex: Female

DRUGS (10)
  1. ADVAIR HFA [Suspect]
     Indication: CHRONIC OBSTRUCTIVE PULMONARY DISEASE
     Dosage: 1PUFF TWICE PER DAY
     Route: 055
     Dates: start: 20050101
  2. VERAPAMIL [Concomitant]
  3. LIBRAX [Concomitant]
  4. QUINAPRIL [Concomitant]
  5. PREDNISONE TAB [Concomitant]
  6. ZOCOR [Concomitant]
  7. CLARINEX [Concomitant]
  8. OXYGEN [Concomitant]
  9. PLAVIX [Concomitant]
  10. ACIPHEX [Concomitant]

REACTIONS (4)
  - CHOKING SENSATION [None]
  - COUGH [None]
  - DRUG INEFFECTIVE [None]
  - PHARMACEUTICAL PRODUCT COMPLAINT [None]
